FAERS Safety Report 4417627-3 (Version None)
Quarter: 2004Q3

REPORT INFORMATION
  Report Type: 
  Country: None (occurrence: None)
  Receive Date: 20040803
  Receipt Date: 20040726
  Transmission Date: 20050211
  Serious: Yes (Hospitalization)
  Sender: FDA-Public Use
  Company Number: 2002123345SE

PATIENT
  Age: 61 Year
  Sex: Female
  Weight: 60 kg

DRUGS (4)
  1. TAMOXIFEN CITRATE [Suspect]
     Indication: BREAST CANCER
     Dosage: 20 MG, QD, ORAL
     Route: 048
     Dates: start: 20000216, end: 20020902
  2. HYDROCHLOROTHIAZID [Concomitant]
  3. CARVEDILOL [Concomitant]
  4. ISRADIPINE (ISRADIPINE) [Concomitant]

REACTIONS (1)
  - THROMBOPHLEBITIS [None]
